FAERS Safety Report 5274276-5 (Version None)
Quarter: 2007Q1

REPORT INFORMATION
  Report Type: 
  Country: None (occurrence: None)
  Receive Date: 20070323
  Receipt Date: 20070314
  Transmission Date: 20070707
  Serious: Yes (Other)
  Sender: FDA-Public Use
  Company Number: GB-JNJFOC-20061105875

PATIENT
  Age: 45 Year
  Sex: Male

DRUGS (2)
  1. RISPERDAL [Suspect]
     Indication: DRUG USE FOR UNKNOWN INDICATION
     Route: 048
  2. EPILIM [Concomitant]

REACTIONS (6)
  - CONVULSION [None]
  - EPILEPSY [None]
  - INITIAL INSOMNIA [None]
  - INSOMNIA [None]
  - SOMNOLENCE [None]
  - URINARY INCONTINENCE [None]
